FAERS Safety Report 13101110 (Version 1)
Quarter: 2017Q1

REPORT INFORMATION
  Report Type: Spontaneous
  Country: US (occurrence: US)
  Receive Date: 20170110
  Receipt Date: 20170110
  Transmission Date: 20170428
  Serious: Yes (Hospitalization)
  Sender: FDA-Public Use
  Company Number: None

PATIENT
  Age: 73 Year
  Sex: Female

DRUGS (11)
  1. IBRANCE [Suspect]
     Active Substance: PALBOCICLIB
     Indication: BREAST CANCER FEMALE
     Route: 048
     Dates: start: 20140709
  2. OMEPRAZOLE. [Concomitant]
     Active Substance: OMEPRAZOLE
  3. VERAPAMIL [Concomitant]
     Active Substance: VERAPAMIL HYDROCHLORIDE
  4. TOMAXIFE [Concomitant]
  5. METOPROLOL. [Concomitant]
     Active Substance: METOPROLOL
  6. STOOL SOFTENER (DOCUSATE SODIUM) [Concomitant]
     Active Substance: DOCUSATE SODIUM
  7. SIMVASTATIN. [Concomitant]
     Active Substance: SIMVASTATIN
  8. TOUJEO SOLO [Concomitant]
  9. TRAMADOL. [Concomitant]
     Active Substance: TRAMADOL
  10. LETROZOLE. [Concomitant]
     Active Substance: LETROZOLE
  11. ASPIRIN. [Concomitant]
     Active Substance: ASPIRIN

REACTIONS (4)
  - Contusion [None]
  - Post procedural haemorrhage [None]
  - Drug dose omission [None]
  - Dizziness [None]

NARRATIVE: CASE EVENT DATE: 201701
